FAERS Safety Report 10414453 (Version 2)
Quarter: 2014Q3

REPORT INFORMATION
  Report Type: Spontaneous
  Country: US (occurrence: US)
  Receive Date: 20140828
  Receipt Date: 20140919
  Transmission Date: 20150326
  Serious: Yes (Hospitalization)
  Sender: FDA-Public Use
  Company Number: US-AMGEN-USASP2014064625

PATIENT
  Age: 77 Year
  Sex: Male
  Weight: 66 kg

DRUGS (8)
  1. MAGNESIUM                          /00082501/ [Concomitant]
     Dosage: 250 MG, DAILY
  2. COENZYME Q10 [Concomitant]
     Active Substance: UBIDECARENONE
     Dosage: DAILY
  3. SENSIPAR [Suspect]
     Active Substance: CINACALCET HYDROCHLORIDE
     Indication: BLOOD PARATHYROID HORMONE INCREASED
     Dosage: 30 MG, QD
     Route: 048
     Dates: start: 20140804
  4. FISH OIL [Concomitant]
     Active Substance: FISH OIL
     Dosage: DAILY
  5. LIPITOR [Concomitant]
     Active Substance: ATORVASTATIN CALCIUM
     Dosage: 80 MG, QD
     Route: 048
  6. ZEMPLAR [Concomitant]
     Active Substance: PARICALCITOL
     Indication: HYPERPARATHYROIDISM
     Dosage: 2 UNIT, UNK
     Route: 042
     Dates: start: 20140117
  7. LISINOPRIL. [Concomitant]
     Active Substance: LISINOPRIL
     Dosage: 10 MG, BID
     Route: 048
  8. COUMADIN [Concomitant]
     Active Substance: WARFARIN SODIUM
     Dosage: 4 MG, 5 / MEET
     Route: 048

REACTIONS (4)
  - Hyperkalaemia [Recovering/Resolving]
  - Carbon dioxide decreased [Unknown]
  - Blood sodium decreased [Unknown]
  - Blood calcium decreased [Unknown]

NARRATIVE: CASE EVENT DATE: 2014
